FAERS Safety Report 7484812-6 (Version None)
Quarter: 2011Q2

REPORT INFORMATION
  Report Type: 
  Country: None (occurrence: None)
  Receive Date: 20110517
  Receipt Date: 20110425
  Transmission Date: 20111010
  Serious: Yes (Other)
  Sender: FDA-Public Use
  Company Number: PHHY2011BR35609

PATIENT
  Sex: Female

DRUGS (14)
  1. TRENTAL [Concomitant]
     Dosage: 400 MG, DAILY
  2. LIPITOR [Concomitant]
     Dosage: 10 MG, ONE TABLET TWICE A WEEK
  3. CALCIUM CARBONATE [Concomitant]
  4. EXELON [Suspect]
     Dosage: 18MG/10CM2 30 SIST (PATCH)
     Route: 062
     Dates: start: 20100801
  5. SODIUM FLUORIDE [Concomitant]
  6. VENOCUR TRIPLEX [Concomitant]
  7. PROPAFENONE HCL [Concomitant]
     Dosage: 300 MG, DAILY
  8. EXELON [Suspect]
     Indication: MEMORY IMPAIRMENT
     Dosage: 9MG/5CM2 15 SIST (PATCH
     Route: 062
     Dates: start: 20100101
  9. VITAMIN D [Concomitant]
  10. FORMOTEROL FUMARATE [Concomitant]
     Dosage: 400 MG, BID
  11. SOMALGIN [Concomitant]
     Dosage: 200 MG, QD
  12. TRENTAL [Concomitant]
     Dosage: 600 MG DAILY
  13. CARDIAZEM [Concomitant]
     Dosage: 180 MG, DAILY
  14. CITALOPRAM HYDROBROMIDE [Concomitant]
     Dosage: 5 MG, QD

REACTIONS (5)
  - DYSPNOEA [None]
  - HALLUCINATION [None]
  - MEMORY IMPAIRMENT [None]
  - WRONG TECHNIQUE IN DRUG USAGE PROCESS [None]
  - CRYING [None]
